FAERS Safety Report 5664870-1 (Version None)
Quarter: 2008Q1

REPORT INFORMATION
  Report Type: 
  Country: None (occurrence: None)
  Receive Date: 20080314
  Receipt Date: 20080304
  Transmission Date: 20080703
  Serious: Yes (Death, Hospitalization, Other)
  Sender: FDA-Public Use
  Company Number: JP-PFIZER INC-2007056739

PATIENT
  Sex: Female
  Weight: 53 kg

DRUGS (12)
  1. IRINOTECAN HCL [Suspect]
     Indication: GASTRIC CANCER
     Dosage: DAILY DOSE:100MG
     Dates: start: 20070507, end: 20070521
  2. CISPLATIN [Suspect]
     Indication: GASTRIC CANCER
     Dosage: DAILY DOSE:50MG
     Route: 042
     Dates: start: 20070507, end: 20070521
  3. DECADRON [Concomitant]
     Indication: PREMEDICATION
     Dates: start: 20070507, end: 20070521
  4. DECADRON [Concomitant]
     Indication: BRAIN OEDEMA
     Dates: start: 20070531, end: 20070603
  5. DECADRON [Concomitant]
     Dates: start: 20070604, end: 20070618
  6. NASEA [Concomitant]
     Indication: PREMEDICATION
     Dates: start: 20070507, end: 20070521
  7. PRIMPERAN INJ [Concomitant]
     Indication: PREMEDICATION
     Route: 031
     Dates: start: 20070507, end: 20070521
  8. FULCALIQ [Concomitant]
     Indication: NUTRITIONAL SUPPORT
     Route: 042
     Dates: start: 20070527, end: 20070611
  9. FULCALIQ [Concomitant]
     Dates: start: 20070612, end: 20070618
  10. SANDOSTATIN [Concomitant]
     Dates: start: 20070601, end: 20070618
  11. ALL OTHER THERAPEUTIC PRODUCTS [Concomitant]
     Indication: BRAIN OEDEMA
     Route: 042
     Dates: start: 20070611, end: 20070618
  12. PERDIPINE [Concomitant]
     Indication: HYPERTENSION
     Route: 042
     Dates: start: 20070618, end: 20070618

REACTIONS (9)
  - ALTERED STATE OF CONSCIOUSNESS [None]
  - ANOREXIA [None]
  - DIARRHOEA [None]
  - DYSPHAGIA [None]
  - LEUKOPENIA [None]
  - NAUSEA [None]
  - NEUTROPENIA [None]
  - THROMBOCYTOPENIA [None]
  - VOMITING [None]
